FAERS Safety Report 6490903-9 (Version None)
Quarter: 2009Q4

REPORT INFORMATION
  Report Type: 
  Country: None (occurrence: None)
  Receive Date: 20091211
  Receipt Date: 20091201
  Transmission Date: 20100525
  Serious: Yes (Other)
  Sender: FDA-Public Use
  Company Number: US-WATSON-2009-10278

PATIENT
  Age: 48 Year
  Sex: Female

DRUGS (5)
  1. ALTOPREV EXTENDED RELEASE (WATSON LABORATORIES) [Suspect]
     Indication: DYSLIPIDAEMIA
     Dosage: UNK
  2. EZETIMIBE [Suspect]
     Indication: DYSLIPIDAEMIA
  3. FLUVASTATIN [Suspect]
     Indication: DYSLIPIDAEMIA
  4. SIMVASTATIN [Suspect]
     Indication: DYSLIPIDAEMIA
  5. EZETIMIBE W/SIMVASTATIN [Suspect]
     Indication: DYSLIPIDAEMIA

REACTIONS (1)
  - AMYOTROPHIC LATERAL SCLEROSIS [None]
